FAERS Safety Report 4682827-4 (Version None)
Quarter: 2005Q2

REPORT INFORMATION
  Report Type: 
  Country: None (occurrence: None)
  Receive Date: 20050606
  Receipt Date: 20050427
  Transmission Date: 20051028
  Serious: Yes (Death)
  Sender: FDA-Public Use
  Company Number: 2005SE02546

PATIENT
  Age: 50 Year
  Sex: Female
  Weight: 65 kg

DRUGS (9)
  1. SEROQUEL [Suspect]
     Indication: SCHIZOPHRENIA
     Route: 048
     Dates: start: 20050215, end: 20050305
  2. SEROQUEL [Suspect]
     Route: 048
     Dates: start: 20050304
  3. SEROQUEL [Suspect]
     Route: 048
  4. RISPERIDON [Concomitant]
     Indication: SCHIZOPHRENIA
     Route: 048
     Dates: start: 20050415
  5. RISPERDAL CONSTA [Concomitant]
     Indication: SCHIZOPHRENIA
     Route: 030
     Dates: start: 20050304
  6. LARGACTIL [Concomitant]
     Indication: SCHIZOPHRENIA
     Route: 048
     Dates: start: 20050215
  7. MELLARIL [Concomitant]
  8. AKINETON [Concomitant]
     Dates: start: 20050215
  9. TOLVON [Concomitant]
     Route: 030
     Dates: start: 20050319, end: 20050319

REACTIONS (1)
  - LEUKOPENIA [None]
